FAERS Safety Report 13341142 (Version 2)
Quarter: 2017Q2

REPORT INFORMATION
  Report Type: Spontaneous
  Country: US (occurrence: US)
  Receive Date: 20170316
  Receipt Date: 20170505
  Transmission Date: 20170830
  Serious: No
  Sender: FDA-Public Use
  Company Number: US-TEVA-747305ACC

PATIENT
  Age: 63 Year
  Sex: Female

DRUGS (1)
  1. COPAXONE [Suspect]
     Active Substance: GLATIRAMER ACETATE
     Indication: MULTIPLE SCLEROSIS
     Dosage: 1 SYRINGE
     Route: 058

REACTIONS (3)
  - Lipoatrophy [Unknown]
  - Injection site swelling [Unknown]
  - Needle fatigue [Unknown]

NARRATIVE: CASE EVENT DATE: 201702
